FAERS Safety Report 7487688-6 (Version None)
Quarter: 2011Q2

REPORT INFORMATION
  Report Type: 
  Country: None (occurrence: None)
  Receive Date: 20110511
  Receipt Date: 20110503
  Transmission Date: 20111010
  Serious: Yes (Death, Hospitalization, Other)
  Sender: FDA-Public Use
  Company Number: 888622

PATIENT
  Age: 63 Year
  Sex: Female
  Weight: 82 kg

DRUGS (5)
  1. DEXAMETHASONE [Concomitant]
  2. OMEPRAZOLE [Concomitant]
  3. ACETAMINOPHEN [Concomitant]
  4. OXALIPLATIN [Suspect]
     Indication: GASTROINTESTINAL CARCINOMA
     Dosage: 238 MG MILLIGRAM(S), 1 DAY, INTRAVNEOUS (NOT OTHERWISE SPECIFIED)
     Route: 042
     Dates: start: 20101126, end: 20101126
  5. XELODA [Suspect]
     Indication: GASTROINTESTINAL CARCINOMA
     Dosage: 1830 MG MILLIGRAM(S), 2 DAY, ORAL
     Route: 048
     Dates: start: 20101126, end: 20101209

REACTIONS (5)
  - COLITIS [None]
  - DEHYDRATION [None]
  - NEUTROPENIC SEPSIS [None]
  - THROMBOCYTOPENIA [None]
  - FLUID INTAKE REDUCED [None]
